FAERS Safety Report 21784859 (Version 7)
Quarter: 2023Q2

REPORT INFORMATION
  Report Type: Spontaneous
  Country: CA (occurrence: CA)
  Receive Date: 20221227
  Receipt Date: 20230510
  Transmission Date: 20230722
  Serious: Yes (Hospitalization, Other)
  Sender: FDA-Public Use
  Company Number: CA-PFIZER INC-202201386424

PATIENT
  Age: 70 Year
  Sex: Female
  Weight: 77 kg

DRUGS (8)
  1. RUXIENCE [Suspect]
     Active Substance: RITUXIMAB-PVVR
     Indication: Rheumatoid arthritis
     Dosage: 1000 MG, DAY 1, DAY 15
     Route: 042
     Dates: start: 20220902, end: 20220916
  2. RUXIENCE [Suspect]
     Active Substance: RITUXIMAB-PVVR
     Dosage: 1000 MG, DAY 1, DAY 15
     Route: 042
     Dates: start: 20220916
  3. RUXIENCE [Suspect]
     Active Substance: RITUXIMAB-PVVR
     Dosage: 1000 MG, DAY 1, DAY 15 (1000 MG, DAY 1)
     Route: 042
     Dates: start: 20230420
  4. RUXIENCE [Suspect]
     Active Substance: RITUXIMAB-PVVR
     Dosage: 1000 MG, DAY 15
     Route: 042
     Dates: start: 20230504
  5. GABAPENTIN [Concomitant]
     Active Substance: GABAPENTIN
     Dosage: 1 DF
  6. GABAPENTIN [Concomitant]
     Active Substance: GABAPENTIN
     Dosage: 1 DF, DOSAGE INFORMATION NOT AVAILABLE
     Route: 065
  7. MORPHINE [Concomitant]
     Active Substance: MORPHINE
     Dosage: 1 DF
  8. MORPHINE [Concomitant]
     Active Substance: MORPHINE
     Dosage: 1 DF, DOSAGE INFORMATION NOT AVAILABLE
     Route: 065

REACTIONS (7)
  - Renal impairment [Recovering/Resolving]
  - Herpes zoster [Recovered/Resolved]
  - Pain [Recovered/Resolved with Sequelae]
  - Headache [Recovering/Resolving]
  - Poor quality sleep [Recovered/Resolved with Sequelae]
  - Vision blurred [Recovered/Resolved with Sequelae]
  - Condition aggravated [Recovering/Resolving]

NARRATIVE: CASE EVENT DATE: 20221031
